FAERS Safety Report 23119423 (Version 11)
Quarter: 2025Q3

REPORT INFORMATION
  Report Type: Spontaneous
  Country: EU (occurrence: EU)
  Receive Date: 20231028
  Receipt Date: 20250918
  Transmission Date: 20251020
  Serious: Yes (Death, Life-Threatening, Hospitalization, Disabling, Congenital Anomaly, Other)
  Sender: SANDOZ
  Company Number: EU-002147023-NVSC2021DE318041

PATIENT
  Age: 80 Year
  Sex: Male
  Weight: 69 kg

DRUGS (30)
  1. CHLORPHENIRAMINE [Suspect]
     Active Substance: CHLORPHENIRAMINE
     Indication: Thrombosis
     Route: 048
  2. CHLORPHENIRAMINE [Suspect]
     Active Substance: CHLORPHENIRAMINE
     Route: 065
  3. ONDANSETRON [Suspect]
     Active Substance: ONDANSETRON
     Dosage: 1 DOSAGE FORM, QD (ORODISPERSIBLE FILM)
     Route: 065
  4. ONDANSETRON [Suspect]
     Active Substance: ONDANSETRON
     Dosage: 1 DOSAGE FORM, Q8H
     Route: 042
  5. ONDANSETRON [Suspect]
     Active Substance: ONDANSETRON
     Route: 065
  6. ONDANSETRON [Suspect]
     Active Substance: ONDANSETRON
     Route: 065
  7. ONDANSETRON [Suspect]
     Active Substance: ONDANSETRON
     Dosage: 36 MG, TID (3 EVERY 1 DAY)
     Route: 042
  8. ONDANSETRON [Suspect]
     Active Substance: ONDANSETRON
     Dosage: 12 MG, QD
     Route: 042
  9. ONDANSETRON [Suspect]
     Active Substance: ONDANSETRON
     Dosage: 12 MG, QD (4 MG, TID)
     Route: 042
  10. ONDANSETRON [Suspect]
     Active Substance: ONDANSETRON
     Dosage: 12 MG, Q8H
     Route: 042
  11. ONDANSETRON [Suspect]
     Active Substance: ONDANSETRON
     Dosage: 12 MG, Q8H
     Route: 042
  12. ONDANSETRON [Suspect]
     Active Substance: ONDANSETRON
     Indication: Nausea
     Dosage: 24 MG, QD (8 MILLIGRAM, Q8H)
     Route: 042
  13. ONDANSETRON [Suspect]
     Active Substance: ONDANSETRON
     Dosage: 24 MG, Q8H
     Route: 042
  14. ONDANSETRON [Suspect]
     Active Substance: ONDANSETRON
     Indication: Vomiting
     Dosage: 36 MG, Q8H (12 MG, Q8H)
     Route: 042
  15. ONDANSETRON [Suspect]
     Active Substance: ONDANSETRON
     Dosage: 4 MG, QD
     Route: 042
     Dates: start: 20200601
  16. ONDANSETRON [Suspect]
     Active Substance: ONDANSETRON
     Indication: Off label use
     Dosage: 4 MG, Q8H
     Route: 042
  17. ONDANSETRON [Suspect]
     Active Substance: ONDANSETRON
     Dosage: 4 MG, Q8H (EVERY 8 HOUR)
     Route: 042
  18. ONDANSETRON [Suspect]
     Active Substance: ONDANSETRON
     Dosage: 40 MG, Q8H
     Route: 042
  19. ONDANSETRON [Suspect]
     Active Substance: ONDANSETRON
     Dosage: 40 MG, Q8H (ORODISPERSIBLE FILM)
     Route: 042
  20. ONDANSETRON [Suspect]
     Active Substance: ONDANSETRON
     Dosage: 41.14 MG, Q8H
     Route: 042
  21. ONDANSETRON [Suspect]
     Active Substance: ONDANSETRON
     Route: 042
  22. ONDANSETRON [Suspect]
     Active Substance: ONDANSETRON
     Route: 042
  23. ONDANSETRON [Suspect]
     Active Substance: ONDANSETRON
     Route: 042
  24. ONDANSETRON [Suspect]
     Active Substance: ONDANSETRON
     Dosage: 8 MG, Q8H
     Route: 042
  25. ONDANSETRON [Suspect]
     Active Substance: ONDANSETRON
     Dosage: UNK, Q8H (ORODISPERSIBLE FILM)
     Route: 065
  26. ONDANSETRON [Suspect]
     Active Substance: ONDANSETRON
     Route: 065
  27. ACETAMINOPHEN [Suspect]
     Active Substance: ACETAMINOPHEN
     Dosage: 5 MG, QD
     Route: 042
  28. ACETAMINOPHEN [Suspect]
     Active Substance: ACETAMINOPHEN
     Indication: Analgesic therapy
     Dosage: 650 MG, QD
     Route: 048
  29. ACETAMINOPHEN [Suspect]
     Active Substance: ACETAMINOPHEN
     Indication: Intentional product misuse
     Dosage: 650 MG, QD
     Route: 048
  30. ACETAMINOPHEN [Suspect]
     Active Substance: ACETAMINOPHEN
     Indication: Off label use
     Dosage: 659 MG, QD
     Route: 048

REACTIONS (65)
  - Somnolence [Fatal]
  - Condition aggravated [Fatal]
  - Hyponatraemia [Fatal]
  - Appendicitis [Fatal]
  - Dry mouth [Fatal]
  - Vomiting [Fatal]
  - Blood phosphorus increased [Fatal]
  - Cardiogenic shock [Fatal]
  - Stress [Fatal]
  - Death [Fatal]
  - Blood uric acid increased [Fatal]
  - Blood cholesterol increased [Fatal]
  - Bacterial infection [Fatal]
  - Swelling [Fatal]
  - Diabetes mellitus [Fatal]
  - Sepsis [Fatal]
  - Sleep disorder [Fatal]
  - Hypophosphataemia [Fatal]
  - Pulmonary embolism [Fatal]
  - Myasthenia gravis [Fatal]
  - Ascites [Fatal]
  - Iron deficiency [Fatal]
  - Hyperphosphataemia [Fatal]
  - Abdominal pain [Fatal]
  - General physical health deterioration [Fatal]
  - Ventricular fibrillation [Fatal]
  - Drug hypersensitivity [Fatal]
  - Appendicolith [Fatal]
  - Nausea [Fatal]
  - Dyspnoea [Fatal]
  - Thrombosis [Fatal]
  - Chronic obstructive pulmonary disease [Fatal]
  - Multiple organ dysfunction syndrome [Fatal]
  - Hypertension [Fatal]
  - Constipation [Fatal]
  - Neuralgia [Fatal]
  - Abdominal distension [Fatal]
  - Anticoagulant therapy [Fatal]
  - Antacid therapy [Fatal]
  - Anaemia [Fatal]
  - Liver disorder [Fatal]
  - Aspiration [Fatal]
  - Headache [Fatal]
  - Asthenia [Fatal]
  - Asthma [Fatal]
  - Bronchopulmonary aspergillosis allergic [Fatal]
  - Benign prostatic hyperplasia [Fatal]
  - Congenital hiatus hernia [Fatal]
  - Coronary artery disease [Fatal]
  - Joint injury [Fatal]
  - Gastrointestinal disorder [Fatal]
  - Transient ischaemic attack [Fatal]
  - Liver disorder [Fatal]
  - Malignant melanoma stage 0 [Fatal]
  - Micturition urgency [Fatal]
  - Upper respiratory tract infection [Fatal]
  - Pain [Fatal]
  - Pyrexia [Fatal]
  - Drug intolerance [Fatal]
  - Intentional product misuse [Fatal]
  - Product dose omission issue [Fatal]
  - Off label use [Fatal]
  - Off label use [Fatal]
  - Product use in unapproved indication [Fatal]
  - Incorrect route of product administration [Fatal]

NARRATIVE: CASE EVENT DATE: 20200601
